FAERS Safety Report 5796775-X (Version None)
Quarter: 2008Q2

REPORT INFORMATION
  Report Type: 
  Country: None (occurrence: None)
  Receive Date: 20080627
  Receipt Date: 20080613
  Transmission Date: 20081010
  Serious: Yes (Hospitalization)
  Sender: FDA-Public Use
  Company Number: HE02-06550007SAE01

PATIENT
  Age: 59 Year
  Sex: Male
  Weight: 94.7111 kg

DRUGS (2)
  1. RIFAXIMIN (FIFAXMIN) [Suspect]
     Indication: HEPATIC ENCEPHALOPATHY
     Dosage: 1100 MG (550 MG, 2 IN 1 D),ORAL
     Route: 048
     Dates: start: 20080317
  2. NOCOMED [Concomitant]

REACTIONS (2)
  - ENTEROCOLITIS INFECTIOUS [None]
  - HYPOKALAEMIA [None]
